FAERS Safety Report 7279896-4 (Version None)
Quarter: 2011Q1

REPORT INFORMATION
  Report Type: 
  Country: None (occurrence: None)
  Receive Date: 20110208
  Receipt Date: 20110127
  Transmission Date: 20110831
  Serious: Yes (Other)
  Sender: FDA-Public Use
  Company Number: US-BAYER-2010-005851

PATIENT
  Sex: Female

DRUGS (1)
  1. MIRENA [Suspect]
     Indication: CONTRACEPTION
     Dosage: UNK
     Dates: start: 20080601, end: 20090401

REACTIONS (7)
  - PRECANCEROUS CELLS PRESENT [None]
  - UTERINE LEIOMYOMA [None]
  - WEIGHT INCREASED [None]
  - FOOD ALLERGY [None]
  - PSORIASIS [None]
  - SCRATCH [None]
  - PAIN IN EXTREMITY [None]
